FAERS Safety Report 6990086-2 (Version None)
Quarter: 2010Q3

REPORT INFORMATION
  Report Type: 
  Country: None (occurrence: None)
  Receive Date: 20100916
  Receipt Date: 20100429
  Transmission Date: 20110219
  Serious: Yes (Other)
  Sender: FDA-Public Use
  Company Number: SE-PFIZER INC-2010031287

PATIENT
  Sex: Female
  Weight: 103 kg

DRUGS (4)
  1. LYRICA [Suspect]
     Indication: ANXIETY
     Dosage: 75 MG, 4X/DAY
     Dates: start: 20100101
  2. ZOPICLONE [Concomitant]
     Indication: SLEEP DISORDER
     Dosage: 5 MG, AT NIGHT
  3. FLUOXETINE [Concomitant]
     Indication: ANXIETY
     Dosage: 20 MG, 3X/DAY
  4. FLUOXETINE [Concomitant]
     Indication: DEPRESSION

REACTIONS (8)
  - DIZZINESS [None]
  - DYSURIA [None]
  - GASTRIC HYPOMOTILITY [None]
  - INSOMNIA [None]
  - ORTHOSTATIC HYPOTENSION [None]
  - PRURITUS [None]
  - TREMOR [None]
  - VISION BLURRED [None]
